FAERS Safety Report 20543026 (Version 2)
Quarter: 2022Q4

REPORT INFORMATION
  Report Type: Report from Study
  Country: FR (occurrence: FR)
  Receive Date: 20220302
  Receipt Date: 20221129
  Transmission Date: 20230113
  Serious: Yes (Hospitalization, Other)
  Sender: FDA-Public Use
  Company Number: FR-BoehringerIngelheim-2022-BI-155859

PATIENT
  Age: 70 Year
  Sex: Male

DRUGS (5)
  1. NINTEDANIB [Suspect]
     Active Substance: NINTEDANIB
     Indication: Product used for unknown indication
     Route: 048
     Dates: start: 20220217, end: 20220217
  2. PEMBROLIZUMAB [Suspect]
     Active Substance: PEMBROLIZUMAB
     Indication: Product used for unknown indication
     Route: 042
     Dates: start: 20220217, end: 20220217
  3. NOVORAPID [Concomitant]
     Active Substance: INSULIN ASPART
     Indication: Diabetes mellitus
     Dosage: IN THE MORNING DQ
     Route: 058
     Dates: start: 20220127
  4. Exforg Peros [Concomitant]
     Indication: Hypertension
     Dosage: 5MG/80MG
  5. Mag 2 Peros [Concomitant]
     Indication: Hypomagnesaemia
     Dosage: 2 TABLETS IN THE MORNING

REACTIONS (1)
  - Cerebral ischaemia [Recovering/Resolving]

NARRATIVE: CASE EVENT DATE: 20220220
